FAERS Safety Report 13553487 (Version 1)
Quarter: 2017Q2

REPORT INFORMATION
  Report Type: Spontaneous
  Country: US (occurrence: US)
  Receive Date: 20170517
  Receipt Date: 20170517
  Transmission Date: 20170830
  Serious: No
  Sender: FDA-Public Use
  Company Number: US-BAYER-2017-082953

PATIENT
  Age: 72 Year
  Sex: Female
  Weight: 97.96 kg

DRUGS (15)
  1. NADOLOL. [Concomitant]
     Active Substance: NADOLOL
  2. PRAVASTATIN. [Concomitant]
     Active Substance: PRAVASTATIN
  3. BACLOFEN. [Concomitant]
     Active Substance: BACLOFEN
  4. GLIPIZIDE. [Concomitant]
     Active Substance: GLIPIZIDE
  5. ZANTAC [Concomitant]
     Active Substance: RANITIDINE HYDROCHLORIDE
  6. LANTUS [Concomitant]
     Active Substance: INSULIN GLARGINE
  7. PROTONIX [Concomitant]
     Active Substance: PANTOPRAZOLE SODIUM
  8. PAROXETINE. [Concomitant]
     Active Substance: PAROXETINE
  9. EFFEXOR XR [Concomitant]
     Active Substance: VENLAFAXINE HYDROCHLORIDE
  10. TAPAZOLE [Concomitant]
     Active Substance: METHIMAZOLE
  11. ALEVE [Suspect]
     Active Substance: NAPROXEN SODIUM
     Indication: PAIN
     Dosage: 1 DF, BID
     Route: 048
  12. FLONASE [Concomitant]
     Active Substance: FLUTICASONE PROPIONATE
  13. LISINOPRIL. [Concomitant]
     Active Substance: LISINOPRIL
  14. METFORMIN [Concomitant]
     Active Substance: METFORMIN HYDROCHLORIDE
  15. COMBIVENT [Concomitant]
     Active Substance: ALBUTEROL SULFATE\IPRATROPIUM BROMIDE

REACTIONS (3)
  - Drug effect incomplete [Unknown]
  - Product use issue [Unknown]
  - Intentional product use issue [Unknown]
